FAERS Safety Report 14621192 (Version 1)
Quarter: 2018Q1

REPORT INFORMATION
  Report Type: Spontaneous
  Country: NL (occurrence: NL)
  Receive Date: 20180310
  Receipt Date: 20180310
  Transmission Date: 20180509
  Serious: Yes (Hospitalization)
  Sender: FDA-Public Use
  Company Number: NL-AUROBINDO-AUR-APL-2018-013099

PATIENT
  Age: 58 Year
  Sex: Male

DRUGS (3)
  1. COLECALCIFEROLUM [Concomitant]
     Route: 065
  2. CLOPIDOGREL [Suspect]
     Active Substance: CLOPIDOGREL BISULFATE
     Indication: PROPHYLAXIS
     Dosage: 75 MILLIGRAM, ONCE A DAY
     Route: 065
  3. ALENDRONINEZUUR [Concomitant]
     Dosage: 70 MILLIGRAM
     Route: 065

REACTIONS (1)
  - Ageusia [Unknown]
